FAERS Safety Report 12332573 (Version 1)
Quarter: 2016Q2

REPORT INFORMATION
  Report Type: Spontaneous
  Country: US (occurrence: US)
  Receive Date: 20160504
  Receipt Date: 20160504
  Transmission Date: 20160815
  Serious: No
  Sender: FDA-Public Use
  Company Number: US-HORIZON-ACT-0110-2016

PATIENT
  Sex: Male

DRUGS (1)
  1. ACTIMMUNE [Suspect]
     Active Substance: INTERFERON GAMMA-1B
     Indication: PULMONARY FIBROSIS
     Dosage: 200 MCG THREE TIMES WEEKLY
     Dates: start: 20130426

REACTIONS (3)
  - Lung disorder [Unknown]
  - Renal disorder [Unknown]
  - Off label use [Unknown]
